FAERS Safety Report 14393182 (Version 1)
Quarter: 2018Q1

REPORT INFORMATION
  Report Type: Spontaneous
  Country: US (occurrence: US)
  Receive Date: 20180112
  Receipt Date: 20180112
  Transmission Date: 20180509
  Serious: Yes (Hospitalization)
  Sender: FDA-Public Use
  Company Number: None

PATIENT
  Age: 69 Year
  Sex: Male
  Weight: 58.97 kg

DRUGS (2)
  1. CEPHALEXIN. [Suspect]
     Active Substance: CEPHALEXIN
     Indication: POSTOPERATIVE WOUND INFECTION
     Route: 048
     Dates: start: 20170825, end: 20170908
  2. CLINDAMYCIN. [Suspect]
     Active Substance: CLINDAMYCIN
     Indication: POSTOPERATIVE WOUND INFECTION
     Route: 048
     Dates: start: 20170908, end: 20170909

REACTIONS (1)
  - Clostridium difficile colitis [None]

NARRATIVE: CASE EVENT DATE: 20171030
